FAERS Safety Report 16669775 (Version 2)
Quarter: 2019Q3

REPORT INFORMATION
  Report Type: Spontaneous
  Country: CN (occurrence: CN)
  Receive Date: 20190805
  Receipt Date: 20190813
  Transmission Date: 20191004
  Serious: Yes (Hospitalization, Other)
  Sender: FDA-Public Use
  Company Number: PHHY2019CN177881

PATIENT
  Age: 23 Year
  Sex: Male

DRUGS (1)
  1. TELBIVUDINE [Suspect]
     Active Substance: TELBIVUDINE
     Indication: ANTIVIRAL TREATMENT
     Dosage: UNK
     Route: 048

REACTIONS (8)
  - Mental disorder [Recovering/Resolving]
  - Myalgia [Recovering/Resolving]
  - Blood lactic acid increased [Unknown]
  - Cardiomegaly [Recovering/Resolving]
  - Cardiac failure acute [Unknown]
  - Lactic acidosis [Unknown]
  - Multiple organ dysfunction syndrome [Recovering/Resolving]
  - Chronic hepatitis B [Unknown]
